FAERS Safety Report 24660822 (Version 1)
Quarter: 2024Q4

REPORT INFORMATION
  Report Type: Spontaneous
  Country: US (occurrence: US)
  Receive Date: 20241125
  Receipt Date: 20241125
  Transmission Date: 20250115
  Serious: No
  Sender: AVADEL CNS PHARMACEUTICALS, LLC
  Company Number: US-AVADEL CNS PHARMACEUTICALS, LLC-2024AVA01870

PATIENT
  Sex: Male
  Weight: 53.515 kg

DRUGS (15)
  1. LUMRYZ [Suspect]
     Active Substance: SODIUM OXYBATE
     Indication: Narcolepsy
     Dosage: 7.5 G, ONCE NIGHTLY
     Route: 048
  2. MYCOPHENOLATE MOFETIL [Concomitant]
     Active Substance: MYCOPHENOLATE MOFETIL
  3. TESTOSTERONE CYPIONATE [Concomitant]
     Active Substance: TESTOSTERONE CYPIONATE
  4. NUCALA [Concomitant]
     Active Substance: MEPOLIZUMAB
  5. GABAPENTIN [Concomitant]
     Active Substance: GABAPENTIN
  6. FLONASE ALLERGY RELIEF [Concomitant]
     Active Substance: FLUTICASONE PROPIONATE
  7. ZYRTEC [Concomitant]
     Active Substance: CETIRIZINE HYDROCHLORIDE
  8. CALCIUM CITRATE + D3 [Concomitant]
  9. BENZONATATE [Concomitant]
     Active Substance: BENZONATATE
  10. ASTEPRO [Concomitant]
     Active Substance: AZELASTINE HYDROCHLORIDE
  11. ATORVASTATIN CALCIUM [Concomitant]
     Active Substance: ATORVASTATIN CALCIUM
  12. ASPIRIN [Concomitant]
     Active Substance: ASPIRIN
  13. ALENDRONATE SODIUM [Concomitant]
     Active Substance: ALENDRONATE SODIUM
  14. ALBUTEROL SULFATE [Concomitant]
     Active Substance: ALBUTEROL SULFATE
  15. ADVAIR HFA [Concomitant]
     Active Substance: FLUTICASONE PROPIONATE\SALMETEROL XINAFOATE

REACTIONS (4)
  - Middle insomnia [Not Recovered/Not Resolved]
  - Memory impairment [Not Recovered/Not Resolved]
  - Somnambulism [Not Recovered/Not Resolved]
  - Disorientation [Not Recovered/Not Resolved]
